FAERS Safety Report 4876887-5 (Version None)
Quarter: 2006Q1

REPORT INFORMATION
  Report Type: 
  Country: None (occurrence: None)
  Receive Date: 20060109
  Receipt Date: 20060109
  Transmission Date: 20060701
  Serious: Yes (Hospitalization)
  Sender: FDA-Public Use
  Company Number: None

PATIENT
  Age: 68 Year
  Sex: Female

DRUGS (3)
  1. GEMZAR [Suspect]
     Indication: PANCREATIC CARCINOMA METASTATIC
     Dosage: 1275 MG WEEKLY IV
     Route: 042
     Dates: start: 20041211, end: 20051220
  2. TAXOTERE [Suspect]
     Indication: PANCREATIC CARCINOMA METASTATIC
     Dosage: 50 MG WEEKLY IV
     Route: 042
     Dates: start: 20041211, end: 20051220
  3. XELODA [Suspect]
     Indication: PANCREATIC CARCINOMA METASTATIC
     Dosage: DAILY PO
     Route: 048
     Dates: start: 20041211, end: 20051220

REACTIONS (1)
  - PELVIC MASS [None]
